FAERS Safety Report 6878616-2 (Version None)
Quarter: 2010Q3

REPORT INFORMATION
  Report Type: 
  Country: None (occurrence: None)
  Receive Date: 20100728
  Receipt Date: 20100714
  Transmission Date: 20110219
  Serious: Yes (Hospitalization)
  Sender: FDA-Public Use
  Company Number: A0866856A

PATIENT
  Age: 57 Year
  Sex: Male
  Weight: 109.1 kg

DRUGS (8)
  1. AVANDIA [Suspect]
     Indication: DIABETES MELLITUS
     Dosage: 4MG PER DAY
     Route: 048
     Dates: start: 20030916, end: 20040901
  2. AVANDAMET [Suspect]
     Route: 048
  3. LIPITOR [Concomitant]
  4. LOPRESSOR [Concomitant]
  5. NEXIUM [Concomitant]
  6. ATENOLOL [Concomitant]
  7. HYZAAR [Concomitant]
  8. ALTACE [Concomitant]

REACTIONS (3)
  - CARDIAC DISORDER [None]
  - MITRAL VALVE DISEASE [None]
  - MYOCARDIAL INFARCTION [None]
